FAERS Safety Report 21440023 (Version 1)
Quarter: 2022Q4

REPORT INFORMATION
  Report Type: Spontaneous
  Country: US (occurrence: None)
  Receive Date: 20221009
  Receipt Date: 20221009
  Transmission Date: 20230113
  Serious: Yes (Other)
  Sender: FDA-Public Use
  Company Number: None

PATIENT
  Age: 74 Year
  Sex: Female
  Weight: 56.25 kg

DRUGS (1)
  1. GABAPENTIN [Suspect]
     Active Substance: GABAPENTIN
     Indication: Restless legs syndrome
     Dosage: OTHER QUANTITY : 30 TABLET(S);?FREQUENCY : AT BEDTIME;?
     Route: 048

REACTIONS (10)
  - Drug ineffective [None]
  - Dyspnoea [None]
  - Confusional state [None]
  - Clumsiness [None]
  - Contusion [None]
  - Disturbance in attention [None]
  - Executive dysfunction [None]
  - Feeling abnormal [None]
  - Hypertension [None]
  - Hyponatraemia [None]

NARRATIVE: CASE EVENT DATE: 20220906
